FAERS Safety Report 21254159 (Version 6)
Quarter: 2022Q4

REPORT INFORMATION
  Report Type: Report from Study
  Country: CA (occurrence: CA)
  Receive Date: 20220825
  Receipt Date: 20221223
  Transmission Date: 20230113
  Serious: Yes (Hospitalization, Other)
  Sender: FDA-Public Use
  Company Number: CA-GLAXOSMITHKLINE-CA2022089114

PATIENT

DRUGS (8)
  1. MEPOLIZUMAB [Suspect]
     Active Substance: MEPOLIZUMAB
     Indication: Asthma
     Dosage: 100 MG, Z, EVERY 4 WEEKS
     Route: 058
     Dates: start: 20201023
  2. MEPOLIZUMAB [Suspect]
     Active Substance: MEPOLIZUMAB
     Indication: Asthma
     Dosage: 100 MG, Z (EVERY 4 WEEKS)
     Route: 058
     Dates: start: 20201023
  3. MEPOLIZUMAB [Suspect]
     Active Substance: MEPOLIZUMAB
     Indication: Asthma
     Dosage: 100 MG, Z,  EVERY 4 WEEKS
     Route: 058
     Dates: start: 20201023
  4. MEPOLIZUMAB [Suspect]
     Active Substance: MEPOLIZUMAB
     Indication: Asthma
     Dosage: 100 MG, Z (EVERY 4 WEEKS)
     Route: 058
     Dates: start: 20201023
  5. BREO ELLIPTA [Suspect]
     Active Substance: FLUTICASONE FUROATE\VILANTEROL TRIFENATATE
     Indication: Product used for unknown indication
     Dosage: UNK
  6. ALVESCO [Suspect]
     Active Substance: CICLESONIDE
     Indication: Product used for unknown indication
     Dosage: UNK
  7. GLYCOPYRROLATE [Suspect]
     Active Substance: GLYCOPYRROLATE
     Indication: Product used for unknown indication
     Dosage: 50 UG, QD
     Route: 055
  8. INDACATEROL ACETATE\MOMETASONE FUROATE [Suspect]
     Active Substance: INDACATEROL ACETATE\MOMETASONE FUROATE
     Indication: Product used for unknown indication
     Dosage: UNK UNK, QD, 150MC/320MCG
     Route: 055

REACTIONS (14)
  - Asthma [Recovering/Resolving]
  - Dyspnoea exertional [Not Recovered/Not Resolved]
  - Asthmatic crisis [Unknown]
  - Pneumonitis [Unknown]
  - Cataract [Unknown]
  - Dyspnoea [Unknown]
  - Back pain [Unknown]
  - Arthralgia [Recovered/Resolved]
  - Oropharyngeal pain [Not Recovered/Not Resolved]
  - Aphonia [Not Recovered/Not Resolved]
  - Injection site pain [Recovered/Resolved]
  - Peripheral swelling [Unknown]
  - Cough [Unknown]
  - Intraocular pressure increased [Unknown]

NARRATIVE: CASE EVENT DATE: 20220601
